FAERS Safety Report 9968391 (Version 1)
Quarter: 2014Q1

REPORT INFORMATION
  Report Type: Report from Study
  Country: US (occurrence: US)
  Receive Date: 20140306
  Receipt Date: 20140306
  Transmission Date: 20141002
  Serious: No
  Sender: FDA-Public Use
  Company Number: US-ABBVIE-13P-163-1140490-00

PATIENT
  Sex: Female

DRUGS (2)
  1. HUMIRA [Suspect]
     Indication: PSORIATIC ARTHROPATHY
     Dates: start: 2009
  2. HUMIRA [Suspect]
     Dates: start: 2012, end: 2013

REACTIONS (8)
  - Foot deformity [Not Recovered/Not Resolved]
  - Injection site pain [Not Recovered/Not Resolved]
  - Skin exfoliation [Not Recovered/Not Resolved]
  - Pruritus [Not Recovered/Not Resolved]
  - Onychoclasis [Not Recovered/Not Resolved]
  - Musculoskeletal stiffness [Not Recovered/Not Resolved]
  - Skin plaque [Not Recovered/Not Resolved]
  - Psoriasis [Not Recovered/Not Resolved]
